FAERS Safety Report 4738216-7 (Version None)
Quarter: 2005Q3

REPORT INFORMATION
  Report Type: 
  Country: None (occurrence: None)
  Receive Date: 20050729
  Receipt Date: 20050715
  Transmission Date: 20060218
  Serious: Yes (Hospitalization)
  Sender: FDA-Public Use
  Company Number: ZLBIGIV/05/17/USA

PATIENT
  Age: 47 Year
  Sex: Male
  Weight: 91.8 kg

DRUGS (15)
  1. CARIMUNE [Suspect]
     Indication: IMMUNODEFICIENCY COMMON VARIABLE
     Dosage: 18 G, MONTHLY, IV
     Route: 042
     Dates: start: 20020201, end: 20050708
  2. ALPRAZOLAM [Concomitant]
  3. ALBUTEROL [Concomitant]
  4. ALBUTEROL SULFATE AND IPRATROPIUM BROMIDE [Concomitant]
  5. CALCIUM GLUCONATE [Concomitant]
  6. VITAMIN D [Concomitant]
  7. OMEPRAZOLE [Concomitant]
  8. BENZONATATE [Concomitant]
  9. PREDNISONE [Concomitant]
  10. MIRTAZAPINE [Concomitant]
  11. FELODIPINE [Concomitant]
  12. SERTRALINE HYDROCHLORIDE [Concomitant]
  13. RISEDRONATE (RISEDRONATE SODIUM) [Concomitant]
  14. GABAPENTIN [Concomitant]
  15. SIMVASTATIN [Concomitant]

REACTIONS (8)
  - DYSPHAGIA [None]
  - INFUSION RELATED REACTION [None]
  - NO REACTION ON PREVIOUS EXPOSURE TO DRUG [None]
  - PARAESTHESIA ORAL [None]
  - PRURITUS [None]
  - RASH PAPULAR [None]
  - URTICARIA [None]
  - WHEEZING [None]
